FAERS Safety Report 8947558 (Version 1)
Quarter: 2012Q4

REPORT INFORMATION
  Report Type: 
  Country: US (occurrence: US)
  Receive Date: 20121204
  Receipt Date: 20121204
  Transmission Date: 20130627
  Serious: Yes (Hospitalization, Other)
  Sender: FDA-Public Use
  Company Number: US-ELI_LILLY_AND_COMPANY-US201211008593

PATIENT
  Age: 61 Year
  Sex: Male

DRUGS (2)
  1. EFFIENT [Suspect]
     Indication: STENT PLACEMENT
     Dosage: UNK
     Dates: start: 20121109, end: 20121114
  2. EFFIENT [Suspect]
     Dosage: UNK
     Dates: start: 201211

REACTIONS (2)
  - Hip fracture [Unknown]
  - Gastrointestinal haemorrhage [Unknown]
